FAERS Safety Report 19453558 (Version 1)
Quarter: 2021Q2

REPORT INFORMATION
  Report Type: Spontaneous
  Country: US (occurrence: US)
  Receive Date: 20210623
  Receipt Date: 20210623
  Transmission Date: 20210717
  Serious: No
  Sender: FDA-Public Use
  Company Number: US-JNJFOC-20210619348

PATIENT
  Sex: Female

DRUGS (1)
  1. WOMENS ROGAINE UNSCENTED [Suspect]
     Active Substance: MINOXIDIL
     Indication: ALOPECIA
     Dosage: DOSE: A HALF A CAP FULL
     Route: 061
     Dates: start: 2021

REACTIONS (2)
  - Oral mucosal discolouration [Unknown]
  - Ephelides [Unknown]

NARRATIVE: CASE EVENT DATE: 202105
